FAERS Safety Report 9688208 (Version 1)
Quarter: 2013Q4

REPORT INFORMATION
  Report Type: Spontaneous
  Country: IT (occurrence: IT)
  Receive Date: 20131114
  Receipt Date: 20131114
  Transmission Date: 20140711
  Serious: Yes (Life-Threatening)
  Sender: FDA-Public Use
  Company Number: IT-BRISTOL-MYERS SQUIBB COMPANY-19809953

PATIENT
  Age: 84 Year
  Sex: Female
  Weight: 55 kg

DRUGS (3)
  1. METFORMIN HCL [Suspect]
     Indication: TYPE 2 DIABETES MELLITUS
     Route: 048
  2. LASIX [Concomitant]
     Indication: HYPERTENSION
  3. RAMIPRIL [Concomitant]
     Indication: HYPERTENSION

REACTIONS (2)
  - Metabolic acidosis [Recovering/Resolving]
  - Medication error [Recovering/Resolving]
